FAERS Safety Report 6693716-8 (Version None)
Quarter: 2010Q2

REPORT INFORMATION
  Report Type: 
  Country: None (occurrence: None)
  Receive Date: 20100421
  Receipt Date: 20100406
  Transmission Date: 20101027
  Serious: Yes (Hospitalization)
  Sender: FDA-Public Use
  Company Number: 2008-04060

PATIENT
  Age: 70 Year
  Sex: Male
  Weight: 92.1 kg

DRUGS (30)
  1. VELCADE [Suspect]
     Indication: MULTIPLE MYELOMA
     Dosage: 2.6 MG; 1.3 MG/M2, IV BOLUS, 1.3 MG; 2 MG; 2.3 MG
     Route: 040
     Dates: start: 20081006, end: 20081020
  2. VELCADE [Suspect]
     Indication: MULTIPLE MYELOMA
     Dosage: 2.6 MG; 1.3 MG/M2, IV BOLUS, 1.3 MG; 2 MG; 2.3 MG
     Route: 040
     Dates: start: 20081113, end: 20081120
  3. VELCADE [Suspect]
     Indication: MULTIPLE MYELOMA
     Dosage: 2.6 MG; 1.3 MG/M2, IV BOLUS, 1.3 MG; 2 MG; 2.3 MG
     Route: 040
     Dates: start: 20080201, end: 20081222
  4. VELCADE [Suspect]
     Indication: MULTIPLE MYELOMA
     Dosage: 2.6 MG; 1.3 MG/M2, IV BOLUS, 1.3 MG; 2 MG; 2.3 MG
     Route: 040
     Dates: start: 20081226, end: 20090102
  5. VELCADE [Suspect]
     Indication: MULTIPLE MYELOMA
     Dosage: 2.6 MG; 1.3 MG/M2, IV BOLUS, 1.3 MG; 2 MG; 2.3 MG
     Route: 040
     Dates: start: 20080917
  6. DEXAMETHASONE [Suspect]
     Indication: MULTIPLE MYELOMA
     Dosage: 20 MG, ORAL
     Route: 048
     Dates: start: 20080917, end: 20081020
  7. THALIDOMIDE [Suspect]
     Indication: MULTIPLE MYELOMA
     Dosage: 100 MG, ORAL; 50 MG, ORAL
     Route: 048
     Dates: start: 20081015
  8. THALIDOMIDE [Suspect]
     Indication: MULTIPLE MYELOMA
     Dosage: 100 MG, ORAL; 50 MG, ORAL
     Route: 048
     Dates: start: 20090101
  9. TOPROL-XL [Concomitant]
  10. ZOCOR [Concomitant]
  11. AMIODARONE HCL [Concomitant]
  12. ALTACE [Concomitant]
  13. DIGOXIN [Concomitant]
  14. SYNTHROID [Concomitant]
  15. ASPIRIN [Concomitant]
  16. NIASPAN [Concomitant]
  17. SPIRIVA [Concomitant]
  18. DURAGESIC-100 [Concomitant]
  19. ACETAMINOPHEN AND OXYCODONE HCL [Concomitant]
  20. COMPAZINE [Concomitant]
  21. ALLOPURINOL [Concomitant]
  22. LANOXIN [Concomitant]
  23. LORAZEPAM [Concomitant]
  24. MEGESTROL ACETATE [Concomitant]
  25. KAPIDEX (DIXLANSOPRAZOLE) [Concomitant]
  26. MIRALAX [Concomitant]
  27. ZANTAC	/00550802/ (RANITIDINE HYDROCHLORIDE) [Concomitant]
  28. PERCOCET [Concomitant]
  29. ACYCLOVIR  /00587301/ (ACICLOVIR) [Concomitant]
  30. EYE DROPS (TETRYZOLINE HYDROCHLORIDE) [Concomitant]

REACTIONS (14)
  - BACTERIAL INFECTION [None]
  - DEEP VEIN THROMBOSIS [None]
  - DRY SKIN [None]
  - DYSPNOEA EXERTIONAL [None]
  - EMPHYSEMA [None]
  - HEPATIC CYST [None]
  - HYPERSOMNIA [None]
  - ILEUS PARALYTIC [None]
  - NEUROPATHY PERIPHERAL [None]
  - SINUSITIS [None]
  - SKIN EXFOLIATION [None]
  - SMALL INTESTINAL OBSTRUCTION [None]
  - SPLENIC GRANULOMA [None]
  - SPUTUM CULTURE POSITIVE [None]
